FAERS Safety Report 13546482 (Version 1)
Quarter: 2017Q2

REPORT INFORMATION
  Report Type: Report from Study
  Country: AT (occurrence: AT)
  Receive Date: 20170515
  Receipt Date: 20170515
  Transmission Date: 20170830
  Serious: Yes (Hospitalization)
  Sender: FDA-Public Use
  Company Number: US-ASTRAZENECA-2017SE51310

PATIENT
  Age: 56 Year
  Sex: Male

DRUGS (6)
  1. RITUXIMAB [Suspect]
     Active Substance: RITUXIMAB
     Indication: DIFFUSE LARGE B-CELL LYMPHOMA
     Dosage: 670 MG
     Route: 041
     Dates: start: 20170428, end: 20170428
  2. VINCRISTINE [Suspect]
     Active Substance: VINCRISTINE
     Indication: DIFFUSE LARGE B-CELL LYMPHOMA
     Dosage: 2 MG
     Route: 041
     Dates: start: 20170428, end: 20170428
  3. DOXORUBICIN [Suspect]
     Active Substance: DOXORUBICIN
     Indication: DIFFUSE LARGE B-CELL LYMPHOMA
     Dosage: 800 MG
     Route: 041
     Dates: start: 20170428, end: 20170428
  4. MEDI4736 [Suspect]
     Active Substance: DURVALUMAB
     Indication: DIFFUSE LARGE B-CELL LYMPHOMA
     Dosage: 1125 MG
     Route: 041
     Dates: start: 20170428, end: 20170428
  5. CYCLOPHOSPHAMIDE. [Suspect]
     Active Substance: CYCLOPHOSPHAMIDE
     Indication: DIFFUSE LARGE B-CELL LYMPHOMA
     Dosage: 1350 MG
     Route: 041
     Dates: start: 20170428, end: 20170428
  6. PREDNISONE. [Suspect]
     Active Substance: PREDNISONE
     Indication: DIFFUSE LARGE B-CELL LYMPHOMA
     Dosage: 100 MG
     Route: 048
     Dates: start: 20170428, end: 20170502

REACTIONS (1)
  - Febrile neutropenia [Not Recovered/Not Resolved]

NARRATIVE: CASE EVENT DATE: 20170506
